FAERS Safety Report 8962778 (Version 2)
Quarter: 2013Q1

REPORT INFORMATION
  Report Type: Spontaneous
  Country: SE (occurrence: SE)
  Receive Date: 20121214
  Receipt Date: 20130123
  Transmission Date: 20140127
  Serious: Yes (Hospitalization)
  Sender: FDA-Public Use
  Company Number: SE-JNJFOC-20121203028

PATIENT
  Age: 58 Year
  Sex: Female

DRUGS (1)
  1. SIMPONI [Suspect]
     Indication: RHEUMATOID ARTHRITIS
     Route: 058
     Dates: start: 20111207, end: 20120503

REACTIONS (2)
  - Pneumonia [Unknown]
  - Lung disorder [Recovering/Resolving]
